FAERS Safety Report 21215716 (Version 1)
Quarter: 2022Q3

REPORT INFORMATION
  Report Type: Report from Study
  Country: FR (occurrence: FR)
  Receive Date: 20220816
  Receipt Date: 20220816
  Transmission Date: 20221026
  Serious: Yes (Life-Threatening)
  Sender: FDA-Public Use
  Company Number: FR-BAYER-2022A113643

PATIENT
  Age: 67 Year
  Sex: Female
  Weight: 90 kg

DRUGS (6)
  1. TRASYLOL [Suspect]
     Active Substance: APROTININ
     Indication: Aortic dissection
     Dosage: 300 MILLILITRE TOTAL LOADING DOSE 1 MILLION KIU
     Route: 042
     Dates: start: 20210507, end: 20210507
  2. APIXABAN [Concomitant]
     Active Substance: APIXABAN
     Indication: Anticoagulant therapy
  3. HEPARIN [Concomitant]
     Active Substance: HEPARIN SODIUM
     Indication: Anticoagulant therapy
     Dosage: 45 KILO-INTERNATIONAL UNIT TOTAL DURING SURGERY
     Route: 042
     Dates: start: 20210507, end: 20210507
  4. HUMAN RED BLOOD CELL [Concomitant]
     Active Substance: HUMAN RED BLOOD CELL
     Indication: Transfusion
     Dosage: 577 MILLILITRE INTRAOPERATIVELY AND UP TO 48 HOURS AFTER SURGERY
     Route: 042
     Dates: start: 20210507
  5. FIBRINOGEN [Concomitant]
     Active Substance: FIBRINOGEN HUMAN
     Indication: Transfusion
     Dosage: 3 GRAM INTRAOPERATIVELY AND UP TO 48 HOURS AFTER SURGERY
     Route: 042
     Dates: start: 20210507
  6. PROTHROMBIN COMPLEX CONCENTRATE NOS [Concomitant]
     Active Substance: COAGULATION FACTOR IX HUMAN\COAGULATION FACTOR VII HUMAN\COAGULATION FACTOR X HUMAN\PROTHROMBIN
     Indication: Transfusion
     Dosage: 1000 MILLILITRE INTRAOPERATIVELY AND UP TO 48 HOURS AFTER SURGERY
     Route: 042
     Dates: start: 20210507

REACTIONS (4)
  - Dialysis [Recovering/Resolving]
  - Ischaemic stroke [Recovered/Resolved]
  - Off label use [Unknown]
  - Off label use [None]

NARRATIVE: CASE EVENT DATE: 20210507
